FAERS Safety Report 4688298-6 (Version None)
Quarter: 2005Q2

REPORT INFORMATION
  Report Type: 
  Country: None (occurrence: None)
  Receive Date: 20050610
  Receipt Date: 20050310
  Transmission Date: 20051028
  Serious: Yes (Hospitalization, Disabling)
  Sender: FDA-Public Use
  Company Number: US-MERCK-0503USA02282

PATIENT
  Age: 54 Year
  Sex: Female
  Weight: 68 kg

DRUGS (7)
  1. VIOXX [Suspect]
     Indication: ARTHRITIS
     Route: 048
     Dates: start: 20010623, end: 20030411
  2. VIOXX [Suspect]
     Route: 048
     Dates: start: 20000601, end: 20030401
  3. VIOXX [Suspect]
     Route: 048
     Dates: start: 20000601, end: 20030401
  4. ANTIVERT [Concomitant]
     Route: 065
  5. ESTROGENS (UNSPECIFIED) [Concomitant]
     Route: 065
  6. ASPIRIN [Concomitant]
     Route: 065
  7. DARVOCET-N 100 [Concomitant]
     Route: 065

REACTIONS (44)
  - ANEURYSM [None]
  - ARTERY DISSECTION [None]
  - BACK PAIN [None]
  - BASILAR ARTERY THROMBOSIS [None]
  - BLOOD CHOLESTEROL INCREASED [None]
  - BRAIN STEM INFARCTION [None]
  - CEREBELLAR ARTERY OCCLUSION [None]
  - CEREBRAL ATROPHY [None]
  - CEREBROVASCULAR ACCIDENT [None]
  - CONSTIPATION [None]
  - DIFFICULTY IN WALKING [None]
  - DISTURBANCE IN ATTENTION [None]
  - DIZZINESS [None]
  - DYSARTHRIA [None]
  - EMOTIONAL DISTRESS [None]
  - FACIAL PALSY [None]
  - FIBROMYALGIA [None]
  - GROIN PAIN [None]
  - HAEMANGIOMA [None]
  - HAEMANGIOMA OF LIVER [None]
  - HEADACHE [None]
  - HEPATIC LESION [None]
  - HYPERLIPIDAEMIA [None]
  - HYPOAESTHESIA [None]
  - HYPOAESTHESIA ORAL [None]
  - INCREASED TENDENCY TO BRUISE [None]
  - INTERVERTEBRAL DISC PROTRUSION [None]
  - INTRACRANIAL ANEURYSM [None]
  - ISCHAEMIA [None]
  - MEMORY IMPAIRMENT [None]
  - MIGRAINE [None]
  - NEURALGIA [None]
  - OSTEOARTHRITIS [None]
  - PALPITATIONS [None]
  - PARAESTHESIA [None]
  - RETROPERITONEAL HAEMATOMA [None]
  - RETROPERITONEAL HAEMORRHAGE [None]
  - SPEECH DISORDER [None]
  - TONGUE PARALYSIS [None]
  - TREMOR [None]
  - URINARY TRACT INFECTION [None]
  - VERTIGO [None]
  - VISUAL DISTURBANCE [None]
  - VOMITING [None]
